FAERS Safety Report 15058302 (Version 2)
Quarter: 2018Q3

REPORT INFORMATION
  Report Type: Report from Study
  Country: None (occurrence: CA)
  Receive Date: 20180625
  Receipt Date: 20180719
  Transmission Date: 20181010
  Serious: Yes (Other)
  Sender: FDA-Public Use
  Company Number: CA-ABBVIE-18K-028-2396625-00

PATIENT
  Age: 51 Year
  Sex: Female
  Weight: 55.84 kg

DRUGS (3)
  1. HUMIRA [Suspect]
     Active Substance: ADALIMUMAB
     Route: 058
     Dates: start: 20180509
  2. HUMIRA [Suspect]
     Active Substance: ADALIMUMAB
     Indication: CROHN^S DISEASE
     Route: 058
     Dates: start: 20090505
  3. HUMIRA [Suspect]
     Active Substance: ADALIMUMAB
     Route: 058
     Dates: start: 20180309, end: 20180418

REACTIONS (6)
  - Nephrolithiasis [Not Recovered/Not Resolved]
  - Abdominal pain [Not Recovered/Not Resolved]
  - Candida infection [Unknown]
  - Intervertebral disc degeneration [Not Recovered/Not Resolved]
  - Postoperative adhesion [Not Recovered/Not Resolved]
  - Tooth extraction [Recovered/Resolved]

NARRATIVE: CASE EVENT DATE: 2018
